FAERS Safety Report 6999987-2 (Version None)
Quarter: 2010Q3

REPORT INFORMATION
  Report Type: 
  Country: None (occurrence: None)
  Receive Date: 20100920
  Receipt Date: 20100723
  Transmission Date: 20110219
  Serious: Yes (Other)
  Sender: FDA-Public Use
  Company Number: US-ASTRAZENECA-2009UW17565

PATIENT
  Age: 37 Year
  Sex: Female
  Weight: 149.7 kg

DRUGS (10)
  1. SEROQUEL [Suspect]
     Indication: INSOMNIA
     Route: 048
     Dates: start: 19990101
  2. SEROQUEL [Suspect]
     Dosage: 300 MG - 400 MG
     Route: 048
     Dates: start: 20040101
  3. WELLBUTRIN [Concomitant]
     Dates: start: 20050101
  4. KLONOPIN [Concomitant]
     Dates: start: 20050101
  5. TOPAMAX [Concomitant]
     Dates: start: 20060922
  6. FENTANYL CITRATE [Concomitant]
     Dates: start: 20090202
  7. AMBIEN [Concomitant]
     Dates: start: 20090202
  8. CLONAZEPAM [Concomitant]
     Dates: start: 20090202
  9. LYRICA [Concomitant]
     Dates: start: 20090202
  10. DIOVAN [Concomitant]
     Dates: start: 20090202

REACTIONS (8)
  - ASTHMA [None]
  - BLOOD CHOLESTEROL INCREASED [None]
  - HYPERLIPIDAEMIA [None]
  - JOINT INJURY [None]
  - OSTEOARTHRITIS [None]
  - PANCREATITIS [None]
  - TYPE 2 DIABETES MELLITUS [None]
  - WEIGHT INCREASED [None]
